FAERS Safety Report 10070172 (Version 2)
Quarter: 2014Q2

REPORT INFORMATION
  Report Type: Spontaneous
  Country: DE (occurrence: None)
  Receive Date: 20140408
  Receipt Date: 20140410
  Transmission Date: 20141212
  Serious: Yes (Other)
  Sender: FDA-Public Use
  Company Number: 2014-19289

PATIENT
  Sex: Female

DRUGS (1)
  1. EYLEA [Suspect]
     Indication: AGE-RELATED MACULAR DEGENERATION
     Dosage: EVERY 5 WEEKS
     Dates: start: 20130822

REACTIONS (3)
  - Haemorrhage [None]
  - Inappropriate schedule of drug administration [None]
  - Eye haemorrhage [None]
